FAERS Safety Report 11130775 (Version 1)
Quarter: 2015Q2

REPORT INFORMATION
  Report Type: Spontaneous
  Country: US (occurrence: US)
  Receive Date: 20150522
  Receipt Date: 20150522
  Transmission Date: 20150821
  Serious: No
  Sender: FDA-Public Use
  Company Number: US-BAYER-2015-249340

PATIENT
  Sex: Female

DRUGS (3)
  1. ALEVE [Suspect]
     Active Substance: NAPROXEN SODIUM
     Indication: INJURY
  2. ALEVE [Suspect]
     Active Substance: NAPROXEN SODIUM
     Indication: PAIN
  3. ALEVE [Suspect]
     Active Substance: NAPROXEN SODIUM
     Indication: PROPHYLAXIS
     Dosage: UNK

REACTIONS (1)
  - Therapeutic response unexpected [None]
